FAERS Safety Report 25576424 (Version 2)
Quarter: 2025Q3

REPORT INFORMATION
  Report Type: Report from Study
  Country: US (occurrence: US)
  Receive Date: 20250718
  Receipt Date: 20250915
  Transmission Date: 20251020
  Serious: No
  Sender: SUNOVION
  Company Number: US-SMPA-2025SPA008384AA

PATIENT
  Age: 69 Year
  Sex: Male

DRUGS (21)
  1. ORGOVYX [Suspect]
     Active Substance: RELUGOLIX
     Indication: Prostate cancer
     Route: 048
     Dates: start: 20250308, end: 20250308
  2. ORGOVYX [Suspect]
     Active Substance: RELUGOLIX
     Route: 048
  3. FISH OIL [Concomitant]
     Active Substance: FISH OIL
  4. MAGNESIUM OXIDE [Concomitant]
     Active Substance: MAGNESIUM OXIDE
  5. POTASSIUM GLUCONATE [Concomitant]
     Active Substance: POTASSIUM GLUCONATE
  6. Turmeric complex [Concomitant]
  7. VITAMIN C [Concomitant]
     Active Substance: ASCORBIC ACID
  8. VITAMIN D [Concomitant]
     Active Substance: VITAMIN D NOS
  9. ZINC [Concomitant]
     Active Substance: ZINC
  10. Berberine with insea2 [Concomitant]
  11. COENZYME Q10 [Concomitant]
     Active Substance: DIETARY SUPPLEMENT\UBIDECARENONE
     Route: 048
  12. Cortisol Manager [Concomitant]
  13. GARLIQUE [Concomitant]
     Active Substance: GARLIC
  14. KELP [Concomitant]
     Active Substance: KELP
  15. WORMWOOD [Concomitant]
     Active Substance: WORMWOOD
     Route: 048
  16. BLACK COHOSH [Concomitant]
     Active Substance: BLACK COHOSH
  17. OREGANO LEAF OIL [Concomitant]
     Active Substance: OREGANO LEAF OIL
  18. VITAMIN B [Concomitant]
     Active Substance: VITAMIN B
  19. ERLEADA [Concomitant]
     Active Substance: APALUTAMIDE
  20. ALLEGRA ALLERGY [Concomitant]
     Active Substance: FEXOFENADINE HYDROCHLORIDE
  21. METHYLPREDNISOLONE [Concomitant]
     Active Substance: METHYLPREDNISOLONE

REACTIONS (4)
  - Peripheral swelling [Unknown]
  - Frequent bowel movements [Unknown]
  - Rash [Unknown]
  - Abdominal pain [Unknown]
